FAERS Safety Report 24462690 (Version 1)
Quarter: 2024Q4

REPORT INFORMATION
  Report Type: Spontaneous
  Country: US (occurrence: US)
  Receive Date: 20241018
  Receipt Date: 20241018
  Transmission Date: 20250115
  Serious: Yes (Hospitalization, Other)
  Sender: BAYER HEALTHCARE LLC
  Company Number: US-BAYER-2024A149055

PATIENT
  Age: 57 Year
  Sex: Male

DRUGS (4)
  1. ASPIRIN [Suspect]
     Active Substance: ASPIRIN
  2. RAMIPRIL [Concomitant]
     Active Substance: RAMIPRIL
  3. PROPRANOLOL [Concomitant]
     Active Substance: PROPRANOLOL HYDROCHLORIDE
  4. ALIROCUMAB [Concomitant]
     Active Substance: ALIROCUMAB
     Indication: Lipids increased
     Dosage: UNK UNK, OM

REACTIONS (1)
  - Haematuria [None]
